FAERS Safety Report 9122050 (Version 1)
Quarter: 2013Q1

REPORT INFORMATION
  Report Type: Spontaneous
  Country: US (occurrence: None)
  Receive Date: 20130125
  Receipt Date: 20130125
  Transmission Date: 20140127
  Serious: No
  Sender: FDA-Public Use
  Company Number: 2012US-004450

PATIENT
  Age: 46 Year
  Sex: Female

DRUGS (6)
  1. OMONTYS (PEGINESATIDE) SOLUTION FOR INJECTION [Suspect]
     Indication: NEPHROGENIC ANAEMIA
     Route: 042
     Dates: start: 20121002, end: 20121103
  2. HEPARIN (HEPARIN) [Concomitant]
  3. VENOFER [Concomitant]
  4. ZEMPLAR (PARICALCITOL) [Concomitant]
  5. NITROGLYCERIN (GLYCERYL TRINITRATE) [Concomitant]
  6. BODY QUEST ICE CREAM [Concomitant]

REACTIONS (9)
  - Blood pressure decreased [None]
  - Headache [None]
  - Chest pain [None]
  - Hypersensitivity [None]
  - Dyspnoea [None]
  - Angioedema [None]
  - Malaise [None]
  - Nausea [None]
  - Vomiting [None]
